FAERS Safety Report 5009742-0 (Version None)
Quarter: 2006Q2

REPORT INFORMATION
  Report Type: 
  Country: None (occurrence: None)
  Receive Date: 20060524
  Receipt Date: 19970116
  Transmission Date: 20061013
  Serious: Yes (Hospitalization)
  Sender: FDA-Public Use
  Company Number: FR-ROCHE-74905

PATIENT
  Age: 62 Year
  Sex: Female
  Weight: 76 kg

DRUGS (5)
  1. ROFERON-A [Suspect]
     Route: 058
     Dates: start: 19960802, end: 19970114
  2. PLACEBO [Suspect]
     Route: 048
     Dates: start: 19960802, end: 19970114
  3. STAGID [Concomitant]
     Route: 048
     Dates: start: 19920615
  4. GUTRON [Concomitant]
     Route: 048
     Dates: start: 19940615
  5. ACETAMINOPHEN [Concomitant]
     Route: 048
     Dates: start: 19960801, end: 19970113

REACTIONS (8)
  - CHEST DISCOMFORT [None]
  - DIZZINESS [None]
  - HEPATIC STEATOSIS [None]
  - ORTHOSTATIC HYPOTENSION [None]
  - PHOTOPSIA [None]
  - SJOGREN'S SYNDROME [None]
  - SPINAL MYELOGRAM ABNORMAL [None]
  - TINNITUS [None]
